FAERS Safety Report 7069753-0 (Version None)
Quarter: 2010Q4

REPORT INFORMATION
  Report Type: 
  Country: None (occurrence: None)
  Receive Date: 20101028
  Receipt Date: 20100618
  Transmission Date: 20110411
  Serious: No
  Sender: FDA-Public Use
  Company Number: US-WYE-H15665410

PATIENT
  Sex: Male
  Weight: 70.37 kg

DRUGS (6)
  1. BENEFIX [Suspect]
     Indication: FACTOR IX DEFICIENCY
     Dosage: 2000 UNITS AS NEEDED FOR A SMALL BLEED
     Dates: start: 20050101
  2. BENEFIX [Suspect]
     Dosage: 4000 UNITS AS NEEDED FOR INTERMEDIATE BLEEDS
     Dates: start: 20050101
  3. BENEFIX [Suspect]
     Dosage: 6000 UNITS AS NEEDED FOR BLEEDS IN THE JOINT OR HEAD
     Dates: start: 20050101
  4. BENEFIX [Suspect]
     Dosage: RECENTLY INJECTED 2000 UNITS ONE DAY (DATE UNSPECIFIED) AT HOME
     Dates: start: 20100101, end: 20100101
  5. BENEFIX [Suspect]
     Dosage: RECENTLY INJECTED 4000 UNITS ON ANOTHER DAY (DATE UNSPECIFIED) AT HOME
     Dates: start: 20100101, end: 20100101
  6. BENEFIX [Suspect]
     Dosage: 6000 UNITS IN THE EMERGENCY ROOM BECAUSE THE PATIENT RAN OUT OF HOME STOCK
     Dates: start: 20100530, end: 20100530

REACTIONS (1)
  - HERPES ZOSTER [None]
